FAERS Safety Report 10191570 (Version 2)
Quarter: 2014Q2

REPORT INFORMATION
  Report Type: Spontaneous
  Country: US (occurrence: None)
  Receive Date: 20140521
  Receipt Date: 20140527
  Transmission Date: 20141212
  Serious: Yes (Other)
  Sender: FDA-Public Use
  Company Number: 2014-US-005826

PATIENT
  Age: 32 Year
  Sex: Female

DRUGS (1)
  1. XYREM [Suspect]
     Indication: NARCOLEPSY
     Route: 048
     Dates: start: 201308

REACTIONS (5)
  - Malignant melanoma [None]
  - Cancer surgery [None]
  - Pneumonia [None]
  - Rib fracture [None]
  - Cough [None]
